FAERS Safety Report 9869163 (Version 1)
Quarter: 2014Q1

REPORT INFORMATION
  Report Type: Spontaneous
  Country: US (occurrence: US)
  Receive Date: 20140205
  Receipt Date: 20140205
  Transmission Date: 20141002
  Serious: No
  Sender: FDA-Public Use
  Company Number: US-009507513-1401USA011535

PATIENT
  Sex: Female

DRUGS (2)
  1. ZIOPTAN [Suspect]
     Dosage: 1 GTT IN BOTH EYES, QD
     Route: 047
  2. ZIOPTAN [Suspect]
     Dosage: USED IN BOTH EYES
     Route: 047

REACTIONS (3)
  - Multiple use of single-use product [Unknown]
  - Incorrect dose administered [Unknown]
  - No adverse event [Unknown]
